FAERS Safety Report 9507333 (Version 1)
Quarter: 2013Q3

REPORT INFORMATION
  Report Type: Spontaneous
  Country: JP (occurrence: JP)
  Receive Date: 20130909
  Receipt Date: 20130909
  Transmission Date: 20140515
  Serious: Yes (Other)
  Sender: FDA-Public Use
  Company Number: JP-PFIZER INC-2013256990

PATIENT
  Age: 75 Year
  Sex: Female

DRUGS (1)
  1. CELECOX [Suspect]
     Dosage: UNK
     Route: 048

REACTIONS (2)
  - Diverticulum [Recovered/Resolved]
  - Gastrointestinal haemorrhage [Recovered/Resolved]
